FAERS Safety Report 6932350-9 (Version None)
Quarter: 2010Q3

REPORT INFORMATION
  Report Type: 
  Country: None (occurrence: None)
  Receive Date: 20100819
  Receipt Date: 20100730
  Transmission Date: 20110219
  Serious: Yes (Hospitalization, Other)
  Sender: FDA-Public Use
  Company Number: US-BAYER-201014476NA

PATIENT
  Age: 20 Year
  Sex: Female
  Weight: 61 kg

DRUGS (3)
  1. YASMIN [Suspect]
     Indication: PREMENSTRUAL SYNDROME
     Route: 048
     Dates: start: 20040101, end: 20080226
  2. ZOLOFT [Concomitant]
     Indication: DEPRESSION
     Dates: start: 20070101, end: 20080101
  3. TRAZODONE HCL [Concomitant]
     Indication: ANXIETY
     Dates: start: 20070101

REACTIONS (5)
  - CHILLS [None]
  - HAEMOPTYSIS [None]
  - MUSCULOSKELETAL PAIN [None]
  - PULMONARY EMBOLISM [None]
  - PULMONARY THROMBOSIS [None]
